FAERS Safety Report 5676145-5 (Version None)
Quarter: 2008Q1

REPORT INFORMATION
  Report Type: 
  Country: None (occurrence: None)
  Receive Date: 20080321
  Receipt Date: 20080318
  Transmission Date: 20080703
  Serious: Yes (Hospitalization, Other)
  Sender: FDA-Public Use
  Company Number: US-AVENTIS-200512684US

PATIENT
  Sex: Male
  Weight: 74.5 kg

DRUGS (13)
  1. KETEK [Suspect]
     Indication: LOWER RESPIRATORY TRACT INFECTION
     Dosage: DOSE: 2 UNIT CAPS
     Route: 048
     Dates: start: 20050216, end: 20050222
  2. ROBITUSSIN [Concomitant]
     Dosage: DOSE: 1 TEASPOON
     Dates: start: 20050216, end: 20050220
  3. LEVAQUIN [Concomitant]
     Route: 048
     Dates: start: 20050224, end: 20050301
  4. PHENERGAN HCL [Concomitant]
     Dosage: DOSE: 1 TEASPOON
     Dates: start: 20050224, end: 20050301
  5. AMBIEN [Concomitant]
     Route: 048
     Dates: start: 20050224, end: 20050301
  6. ASPIRIN [Concomitant]
     Route: 048
     Dates: start: 20050302
  7. DIGOXIN [Concomitant]
     Route: 048
     Dates: start: 20050302
  8. CARDIZEM [Concomitant]
     Route: 048
  9. LASIX [Concomitant]
     Route: 048
  10. COMBIVENT                          /01033501/ [Concomitant]
     Dosage: DOSE: UNK
     Route: 048
  11. ZESTRIL [Concomitant]
     Route: 048
  12. LOPRESSOR [Concomitant]
     Route: 048
  13. ALDACTONE [Concomitant]
     Route: 048

REACTIONS (6)
  - ARRHYTHMIA [None]
  - ATRIAL FIBRILLATION [None]
  - CARDIAC FAILURE CONGESTIVE [None]
  - DYSPNOEA [None]
  - HEPATIC MASS [None]
  - OEDEMA PERIPHERAL [None]
